FAERS Safety Report 19981602 (Version 1)
Quarter: 2021Q4

REPORT INFORMATION
  Report Type: Spontaneous
  Country: US (occurrence: US)
  Receive Date: 20211022
  Receipt Date: 20211022
  Transmission Date: 20220303
  Serious: No
  Sender: FDA-Public Use
  Company Number: US-ALLERGAN-2108862US

PATIENT

DRUGS (1)
  1. RECTIV [Suspect]
     Active Substance: NITROGLYCERIN
     Indication: Product used for unknown indication

REACTIONS (1)
  - Heart rate increased [Recovered/Resolved]
